FAERS Safety Report 20302741 (Version 1)
Quarter: 2022Q1

REPORT INFORMATION
  Report Type: Other
  Country: None (occurrence: US)
  Receive Date: 20220106
  Receipt Date: 20220106
  Transmission Date: 20220423
  Serious: Yes (Death, Other)
  Sender: FDA-Public Use
  Company Number: US-Nuvo Pharmaceuticals Inc-2123656

PATIENT
  Age: 55 Year
  Sex: Male

DRUGS (9)
  1. DIAZEPAM [Suspect]
     Active Substance: DIAZEPAM
     Indication: Anxiety
     Route: 048
  2. MORPHINE [Concomitant]
     Active Substance: MORPHINE
     Route: 048
  3. HYDROMORPHONE HCL [Concomitant]
     Active Substance: HYDROMORPHONE HYDROCHLORIDE
     Route: 042
  4. LORAZEPAM [Concomitant]
     Active Substance: LORAZEPAM
     Route: 042
  5. TRAZODONE [Concomitant]
     Active Substance: TRAZODONE HYDROCHLORIDE
     Route: 065
  6. TRAMADOL [Concomitant]
     Active Substance: TRAMADOL
     Route: 065
  7. CLONIDINE [Concomitant]
     Active Substance: CLONIDINE
     Route: 065
  8. OXYCONTIN [Concomitant]
     Active Substance: OXYCODONE HYDROCHLORIDE
     Route: 048
  9. LIDOCAINE [Concomitant]
     Active Substance: LIDOCAINE
     Route: 042

REACTIONS (2)
  - Drug ineffective [Unknown]
  - Death [Fatal]
